FAERS Safety Report 5574102-0 (Version None)
Quarter: 2007Q4

REPORT INFORMATION
  Report Type: 
  Country: None (occurrence: None)
  Receive Date: 20071221
  Receipt Date: 20071218
  Transmission Date: 20080405
  Serious: Yes (Hospitalization, Other)
  Sender: FDA-Public Use
  Company Number: 2007SP022210

PATIENT
  Age: 61 Year
  Sex: Male
  Weight: 68 kg

DRUGS (8)
  1. PEG-INTRON [Suspect]
     Indication: HEPATITIS C
     Dosage: 150 MCG; QW; SC; 120 MCG; QW; SC
     Route: 058
     Dates: start: 20070215, end: 20070308
  2. PEG-INTRON [Suspect]
     Indication: HEPATITIS C
     Dosage: 150 MCG; QW; SC; 120 MCG; QW; SC
     Route: 058
     Dates: start: 20070315
  3. REBETOL [Suspect]
     Indication: HEPATITIS C
     Dosage: 1000 MG;QD;PO; 800 MG;QD; PO; 600 MG; QD; PO; 400MG;QD;PO; 600MG; QD;PO
     Route: 048
     Dates: start: 20070215, end: 20070323
  4. REBETOL [Suspect]
     Indication: HEPATITIS C
     Dosage: 1000 MG;QD;PO; 800 MG;QD; PO; 600 MG; QD; PO; 400MG;QD;PO; 600MG; QD;PO
     Route: 048
     Dates: start: 20070324, end: 20070523
  5. REBETOL [Suspect]
     Indication: HEPATITIS C
     Dosage: 1000 MG;QD;PO; 800 MG;QD; PO; 600 MG; QD; PO; 400MG;QD;PO; 600MG; QD;PO
     Route: 048
     Dates: start: 20070524, end: 20070606
  6. REBETOL [Suspect]
     Indication: HEPATITIS C
     Dosage: 1000 MG;QD;PO; 800 MG;QD; PO; 600 MG; QD; PO; 400MG;QD;PO; 600MG; QD;PO
     Route: 048
     Dates: start: 20070607, end: 20070627
  7. REBETOL [Suspect]
     Indication: HEPATITIS C
     Dosage: 1000 MG;QD;PO; 800 MG;QD; PO; 600 MG; QD; PO; 400MG;QD;PO; 600MG; QD;PO
     Route: 048
     Dates: start: 20070628
  8. INTERFERON [Concomitant]

REACTIONS (15)
  - ARRHYTHMIA [None]
  - BRAIN NEOPLASM [None]
  - CEREBROVASCULAR DISORDER [None]
  - EPILEPSY [None]
  - FAECAL INCONTINENCE [None]
  - FEELING ABNORMAL [None]
  - INCONTINENCE [None]
  - LOSS OF CONSCIOUSNESS [None]
  - MALAISE [None]
  - MYOCARDIAL ISCHAEMIA [None]
  - PALLOR [None]
  - SALIVARY HYPERSECRETION [None]
  - SYNCOPE VASOVAGAL [None]
  - TRANSIENT ISCHAEMIC ATTACK [None]
  - URINARY INCONTINENCE [None]
